FAERS Safety Report 9457248 (Version 1)
Quarter: 2013Q3

REPORT INFORMATION
  Report Type: Spontaneous
  Country: GB (occurrence: None)
  Receive Date: 20130812
  Receipt Date: 20130812
  Transmission Date: 20140515
  Serious: Yes (Death, Life-Threatening, Hospitalization)
  Sender: FDA-Public Use
  Company Number: INT_00283_2013

PATIENT
  Age: 67 Year
  Sex: Male

DRUGS (4)
  1. MEROPENEM (MEROPENEM) [Suspect]
     Indication: PRODUCT USED FOR UNKNOWN INDICATION
     Dosage: DF , DF
  2. CUBICIN [Suspect]
     Indication: STAPHYLOCOCCAL INFECTION
     Dates: start: 20130222
  3. LINEZOLD [Suspect]
     Indication: PRODUCT USED FOR UNKNOWN INDICATION
  4. FUSIDATE SODIUM [Suspect]

REACTIONS (8)
  - Cardiac failure congestive [None]
  - Staphylococcal bacteraemia [None]
  - Catheter site related reaction [None]
  - Cellulitis [None]
  - Endocarditis [None]
  - Thrombocytopenia [None]
  - Neurotoxicity [None]
  - Somnolence [None]
